FAERS Safety Report 5247319-2 (Version None)
Quarter: 2007Q1

REPORT INFORMATION
  Report Type: 
  Country: None (occurrence: None)
  Receive Date: 20070223
  Receipt Date: 20070223
  Transmission Date: 20070707
  Serious: Yes (Other)
  Sender: FDA-Public Use
  Company Number: None

PATIENT
  Age: 74 Year
  Sex: Female
  Weight: 64.4108 kg

DRUGS (1)
  1. LOVASTATIN [Suspect]
     Indication: BLOOD CHOLESTEROL
     Dosage: 1 TAB  ONCE PER DAY  PO
     Route: 048
     Dates: start: 20030606, end: 20040222

REACTIONS (1)
  - AMNESIA [None]
